FAERS Safety Report 7123010-2 (Version None)
Quarter: 2010Q4

REPORT INFORMATION
  Report Type: 
  Country: None (occurrence: None)
  Receive Date: 20101124
  Receipt Date: 20101112
  Transmission Date: 20110411
  Serious: Yes (Hospitalization, Other)
  Sender: FDA-Public Use
  Company Number: US-ELI_LILLY_AND_COMPANY-US201011004156

PATIENT
  Sex: Male

DRUGS (9)
  1. FORTEO [Suspect]
     Indication: OSTEOPOROSIS
     Dosage: 20 UG, DAILY (1/D)
     Route: 058
  2. LIPITOR [Concomitant]
     Dosage: 20 MG, UNK
  3. CALTRATE [Concomitant]
     Dosage: 1 D/F, 2/D
  4. PRESERVISION LUTEIN EYE VITA.+MIN.SUP.SOFTG. [Concomitant]
  5. VITAMIN D [Concomitant]
     Dosage: UNK, 2/W
  6. HYDROCHLOROTHIAZIDE [Concomitant]
     Dosage: 25 MG, UNK
  7. LISINOPRIL [Concomitant]
     Dosage: 5 MG, DAILY (1/D)
  8. PLAVIX [Concomitant]
     Dosage: 75 MG, DAILY (1/D)
  9. ASPIRIN [Concomitant]
     Dosage: 325 MG, DAILY (1/D)

REACTIONS (3)
  - CARDIAC ENZYMES INCREASED [None]
  - CORONARY ARTERY OCCLUSION [None]
  - FEELING ABNORMAL [None]
